FAERS Safety Report 10606618 (Version 1)
Quarter: 2014Q4

REPORT INFORMATION
  Report Type: Spontaneous
  Country: US (occurrence: None)
  Receive Date: 20141124
  Receipt Date: 20141124
  Transmission Date: 20150529
  Serious: Yes (Hospitalization)
  Sender: FDA-Public Use
  Company Number: None

PATIENT
  Age: 51 Year
  Sex: Female
  Weight: 68 kg

DRUGS (13)
  1. LAMICTAL [Concomitant]
     Active Substance: LAMOTRIGINE
  2. WELLBUTRIN XL [Concomitant]
     Active Substance: BUPROPION HYDROCHLORIDE
  3. K-DUR [Concomitant]
     Active Substance: POTASSIUM CHLORIDE
  4. APAP [Concomitant]
     Active Substance: ACETAMINOPHEN
  5. MAALOX ADVANCE [Concomitant]
  6. HALDOL [Concomitant]
     Active Substance: HALOPERIDOL
  7. NORVASC [Concomitant]
     Active Substance: AMLODIPINE BESYLATE
  8. ROBITUSSIN (GUAIFENESIN) [Concomitant]
     Active Substance: GUAIFENESIN
  9. COGENTIN [Concomitant]
     Active Substance: BENZTROPINE MESYLATE
  10. PRILOSEC [Concomitant]
     Active Substance: OMEPRAZOLE MAGNESIUM
  11. PRAVACHOL [Concomitant]
     Active Substance: PRAVASTATIN SODIUM
  12. LITHIUM [Suspect]
     Active Substance: LITHIUM CARBONATE
     Indication: BIPOLAR DISORDER
     Dosage: CHRONIC, 450MG, QAM, PO
     Route: 048
  13. VITAMIN D [Concomitant]
     Active Substance: CHOLECALCIFEROL

REACTIONS (3)
  - Toxicity to various agents [None]
  - Tremor [None]
  - Gait disturbance [None]

NARRATIVE: CASE EVENT DATE: 20140804
